FAERS Safety Report 7184876-3 (Version None)
Quarter: 2010Q4

REPORT INFORMATION
  Report Type: 
  Country: None (occurrence: None)
  Receive Date: 20101222
  Receipt Date: 20100526
  Transmission Date: 20110411
  Serious: No
  Sender: FDA-Public Use
  Company Number: US-AMGEN-TCS414729

PATIENT

DRUGS (1)
  1. ENBREL [Suspect]
     Indication: ANKYLOSING SPONDYLITIS
     Dosage: 50 MG, QWK
     Route: 058

REACTIONS (7)
  - CHILLS [None]
  - EYE PRURITUS [None]
  - HYPOAESTHESIA [None]
  - OROPHARYNGEAL PAIN [None]
  - PAIN [None]
  - PRODUCTIVE COUGH [None]
  - PULMONARY CONGESTION [None]
